FAERS Safety Report 4823550-2 (Version None)
Quarter: 2005Q4

REPORT INFORMATION
  Report Type: 
  Country: None (occurrence: None)
  Receive Date: 20051107
  Receipt Date: 20051026
  Transmission Date: 20060501
  Serious: Yes (Other)
  Sender: FDA-Public Use
  Company Number: MC200500963

PATIENT

DRUGS (3)
  1. ANGIOMAX [Suspect]
     Indication: ANTICOAGULANT THERAPY
     Dosage: SEE IMAGE
     Dates: start: 20010701, end: 20040801
  2. ANGIOMAX [Suspect]
     Indication: ANTICOAGULANT THERAPY
     Dosage: SEE IMAGE
     Dates: start: 20010701, end: 20040801
  3. ANTIPLATELET THERAPY [Concomitant]

REACTIONS (2)
  - HYPOTENSION [None]
  - TRANSIENT ISCHAEMIC ATTACK [None]
